FAERS Safety Report 8419344-1 (Version None)
Quarter: 2012Q2

REPORT INFORMATION
  Report Type: 
  Country: None (occurrence: None)
  Receive Date: 20120607
  Receipt Date: 20120601
  Transmission Date: 20120825
  Serious: No
  Sender: FDA-Public Use
  Company Number: US-FRI-1000025450

PATIENT
  Sex: Female

DRUGS (5)
  1. SAVELLA [Suspect]
     Dosage: 100 MG
     Dates: start: 20100521
  2. SAVELLA [Suspect]
     Dosage: 50 MG
     Dates: start: 20100517, end: 20100520
  3. SAVELLA [Suspect]
     Indication: FIBROMYALGIA
     Dosage: 12.5 MG
     Dates: start: 20100514, end: 20100514
  4. SAVELLA [Suspect]
     Dosage: 25 MG
     Dates: start: 20100515, end: 20100516
  5. SAVELLA [Suspect]
     Dosage: 200 MG
     Dates: end: 20110101

REACTIONS (3)
  - BREAST PAIN [None]
  - AXILLARY PAIN [None]
  - FIBROCYSTIC BREAST DISEASE [None]
